FAERS Safety Report 6856525-2 (Version None)
Quarter: 2010Q3

REPORT INFORMATION
  Report Type: 
  Country: None (occurrence: None)
  Receive Date: 20100719
  Receipt Date: 20100706
  Transmission Date: 20110219
  Serious: Yes (Disabling)
  Sender: FDA-Public Use
  Company Number: US-CELGENEUS-163-20785-10060504

PATIENT
  Sex: Male

DRUGS (5)
  1. THALOMID [Suspect]
     Indication: MULTIPLE MYELOMA
     Route: 048
     Dates: start: 20091201, end: 20100501
  2. THALOMID [Suspect]
     Route: 048
     Dates: start: 20081101, end: 20091001
  3. THEO-DUR [Concomitant]
     Indication: EMPHYSEMA
     Route: 065
  4. ALBUTEROL [Concomitant]
     Indication: EMPHYSEMA
     Route: 065
  5. PREDNISONE [Concomitant]
     Indication: EMPHYSEMA
     Route: 065

REACTIONS (1)
  - EMPHYSEMA [None]
